FAERS Safety Report 24045780 (Version 1)
Quarter: 2024Q3

REPORT INFORMATION
  Report Type: Spontaneous
  Country: US (occurrence: US)
  Receive Date: 20240703
  Receipt Date: 20240703
  Transmission Date: 20241017
  Serious: Yes (Other)
  Sender: NOVARTIS
  Company Number: US-002147023-NVSC2024US135317

PATIENT
  Sex: Male

DRUGS (25)
  1. TRAMETINIB [Suspect]
     Active Substance: TRAMETINIB
     Indication: Product used for unknown indication
     Dosage: 2 MG, QD
     Route: 065
  2. DABRAFENIB [Suspect]
     Active Substance: DABRAFENIB
     Indication: Product used for unknown indication
     Dosage: 150 MG, BID
     Route: 065
  3. ENCORAFENIB [Suspect]
     Active Substance: ENCORAFENIB
     Indication: Product used for unknown indication
     Dosage: UNK
     Route: 065
     Dates: start: 202008, end: 202012
  4. ENCORAFENIB [Suspect]
     Active Substance: ENCORAFENIB
     Dosage: UNK
     Route: 065
     Dates: start: 202102
  5. BINIMETINIB [Suspect]
     Active Substance: BINIMETINIB
     Indication: Product used for unknown indication
     Dosage: UNK
     Route: 065
     Dates: start: 202008, end: 202012
  6. BINIMETINIB [Suspect]
     Active Substance: BINIMETINIB
     Dosage: UNK (BINEMETINIB WITH 10% INCIDENCE OF COLITIS)
     Route: 065
     Dates: start: 202102
  7. LORAZEPAM [Concomitant]
     Active Substance: LORAZEPAM
     Indication: Product used for unknown indication
     Dosage: UNK (TAKE 1 TAB BY MOUTH AS DIRECTED. TAKE 30 MINUTES PRIOR TO MRI)
     Route: 048
  8. HYDROCODONE BITARTRATE AND ACETAMINOPHEN [Concomitant]
     Active Substance: ACETAMINOPHEN\HYDROCODONE BITARTRATE
     Indication: Pain
     Dosage: 4 DOSAGE FORM
     Route: 048
  9. JANUMET [Concomitant]
     Active Substance: METFORMIN HYDROCHLORIDE\SITAGLIPTIN PHOSPHATE
     Indication: Product used for unknown indication
     Dosage: 1 DOSAGE FORM, BID (50-100 MG, TAKE 1 TAB BY MOUTH TWO TIMES PER DAY WITH MEALS)
     Route: 048
  10. LOPID [Concomitant]
     Active Substance: GEMFIBROZIL
     Indication: Product used for unknown indication
     Dosage: UNK (TAKE 1 TABLET BY MOUTH TWO TIMES PER DAY BEFORE MEALS)
     Route: 048
  11. CELEBREX [Concomitant]
     Active Substance: CELECOXIB
     Indication: Back pain
     Dosage: 1 DOSAGE FORM, PRN (1 CAP TWICE DAILY AS NEEDED, TAKE WITH FOOD)
     Route: 065
  12. CELEBREX [Concomitant]
     Active Substance: CELECOXIB
     Indication: Pain in extremity
  13. DILAUDID [Concomitant]
     Active Substance: HYDROMORPHONE HYDROCHLORIDE
     Indication: Product used for unknown indication
     Dosage: 1 DOSAGE FORM (TAKE 1 TAB BY MOUTH EVERY 6 HOURS AS NEEDED, MAX DAILY AMOUNT WAS 8 MG)
     Route: 048
  14. NALOXONE HCL [Concomitant]
     Active Substance: NALOXONE HYDROCHLORIDE
     Indication: Product used for unknown indication
     Dosage: UNK, PRN (1 SPRAY AS NEEDED FOR FOR OPIOID REVERSAL (MAY REPEAT AS NEEDED IN OTHER NOSTRIL IF SYMPTO
     Route: 065
  15. NOVOLOG [Concomitant]
     Active Substance: INSULIN ASPART
     Indication: Product used for unknown indication
     Dosage: UNK (100 UNIT/ML IJ SOLUTION, INJECT SUBCUTANEOUS AS DIRECTED, INJECT 3 UNITS WITH EACH MEAL + SLIDI
     Route: 065
  16. PRAMIPEXOLE [Concomitant]
     Active Substance: PRAMIPEXOLE\PRAMIPEXOLE DIHYDROCHLORIDE
     Indication: Product used for unknown indication
     Dosage: 5 DOSAGE FORM (TAKE 5 TABS BY MOUTH EVERY NIGHT AT BEDTIME)
     Route: 048
  17. LIDOCAINE [Concomitant]
     Active Substance: LIDOCAINE
     Indication: Product used for unknown indication
     Dosage: UNK (PLACE 1 APPLICATION TOPICALLY ONCE DAILY AS POODED APPLY TO BOTH FEET)
     Route: 065
  18. NEURONTIN [Concomitant]
     Active Substance: GABAPENTIN
     Indication: Product used for unknown indication
     Dosage: 4 DOSAGE FORM (TAKE 4 CAPSULE EVERY NIGHT AT BED TIME)
     Route: 065
  19. LEVETIRACETAM [Concomitant]
     Active Substance: LEVETIRACETAM
     Indication: Product used for unknown indication
     Dosage: 1 DOSAGE FORM, BID (TAKE 1 TAB BY MOUTH TWO TIMES PER DAY)
     Route: 065
  20. GLUCOTROL [Concomitant]
     Active Substance: GLIPIZIDE
     Indication: Product used for unknown indication
     Dosage: 1 DOSAGE FORM, QD (TAKE 1 TAB BY MOUTH ONCE PER DAY)
     Route: 048
  21. LANTUS [Concomitant]
     Active Substance: INSULIN GLARGINE
     Indication: Product used for unknown indication
     Dosage: UNK (INJECT 45 UNITS SUBCUTANEOUS EVERY NIGHT AT BEDTIME. PHARMACY DISPENSE INSULIN GLARGINE PRODUCT
     Route: 058
  22. FERROUS SULFATE [Concomitant]
     Active Substance: FERROUS SULFATE
     Indication: Product used for unknown indication
     Dosage: 1 DOSAGE FORM, QD (65, FE, TAKE 1 TAB BY MOUTH ONCE PER DAY)
     Route: 048
  23. SENOKOT-S [Concomitant]
     Active Substance: DOCUSATE SODIUM\SENNOSIDES
     Indication: Constipation
     Dosage: 1 DOSAGE FORM, PRN (TAB BY MOUTH ONCE DAILY AS NEEDED)
     Route: 048
  24. OMEPRAZOLE [Concomitant]
     Active Substance: OMEPRAZOLE
     Indication: Product used for unknown indication
     Dosage: UNK (DELAYED, RELEASE, TAKE 1 CAP BY MOUTH ONCE PER DAY)
     Route: 048
  25. COZAAR [Concomitant]
     Active Substance: LOSARTAN POTASSIUM
     Indication: Product used for unknown indication
     Dosage: 1 DOSAGE FORM, QD (TAKE 1 TAB BY MOUTH ONCE PER DAY)
     Route: 048

REACTIONS (16)
  - Rhabdomyolysis [Unknown]
  - Acute kidney injury [Unknown]
  - Vasogenic cerebral oedema [Unknown]
  - Metastases to central nervous system [Unknown]
  - Inflammatory bowel disease [Unknown]
  - Colitis [Unknown]
  - Hypoacusis [Unknown]
  - Tinea cruris [Unknown]
  - Weight decreased [Unknown]
  - Anaemia [Recovering/Resolving]
  - Ulcer [Unknown]
  - Headache [Unknown]
  - Gliosis [Unknown]
  - Restless legs syndrome [Unknown]
  - Oedema peripheral [Recovering/Resolving]
  - Arthralgia [Recovering/Resolving]

NARRATIVE: CASE EVENT DATE: 20201201
